FAERS Safety Report 9877832 (Version 1)
Quarter: 2014Q1

REPORT INFORMATION
  Report Type: Spontaneous
  Country: DK (occurrence: IT)
  Receive Date: 20140206
  Receipt Date: 20140206
  Transmission Date: 20141002
  Serious: Yes (Hospitalization)
  Sender: FDA-Public Use
  Company Number: IT-FRI-1000053964

PATIENT
  Age: 40 Year
  Sex: Female
  Weight: 50 kg

DRUGS (2)
  1. CITALOPRAM [Suspect]
     Indication: INSOMNIA
     Dosage: 60 MG
     Route: 048
     Dates: start: 20140109, end: 20140119
  2. STILNOX [Concomitant]
     Indication: INSOMNIA
     Route: 048
     Dates: start: 20140101, end: 20140109

REACTIONS (6)
  - Agitation [Recovering/Resolving]
  - Drug abuse [Recovering/Resolving]
  - Mydriasis [Recovering/Resolving]
  - Syncope [Recovering/Resolving]
  - Psychomotor hyperactivity [Unknown]
  - Off label use [Recovering/Resolving]
